FAERS Safety Report 6201430-8 (Version None)
Quarter: 2009Q2

REPORT INFORMATION
  Report Type: 
  Country: None (occurrence: None)
  Receive Date: 20090526
  Receipt Date: 20090522
  Transmission Date: 20091009
  Serious: Yes (Death, Hospitalization, Other)
  Sender: FDA-Public Use
  Company Number: PHBS2006JP16080

PATIENT
  Sex: Male

DRUGS (6)
  1. GLEEVEC [Suspect]
     Indication: CHRONIC MYELOID LEUKAEMIA
     Dosage: 400 MG/DAY
     Route: 048
     Dates: start: 20060602, end: 20061102
  2. GLEEVEC [Suspect]
     Dosage: 100 MG/DAY
  3. MAGMITT KENEI [Concomitant]
     Indication: CONSTIPATION
     Dosage: 1980 MG
     Route: 048
  4. MUCODYNE [Concomitant]
     Indication: BRONCHITIS
     Dosage: 1500 MG
     Route: 048
     Dates: start: 20060920, end: 20061130
  5. TRANSAMIN [Concomitant]
     Indication: AORTIC ANEURYSM
     Dosage: 750 MG
     Route: 048
     Dates: start: 20060701
  6. RABEPRAZOLE SODIUM [Concomitant]
     Indication: GASTRITIS
     Dosage: 10 MG
     Route: 048
     Dates: start: 20060602

REACTIONS (9)
  - ANAEMIA [None]
  - BRONCHITIS [None]
  - COUGH [None]
  - HAEMOGLOBIN DECREASED [None]
  - HISTIOCYTOSIS HAEMATOPHAGIC [None]
  - MALIGNANT NEOPLASM PROGRESSION [None]
  - PANCYTOPENIA [None]
  - PLATELET COUNT DECREASED [None]
  - THROMBOCYTOPENIA [None]
